FAERS Safety Report 8915684 (Version 1)
Quarter: 2012Q4

REPORT INFORMATION
  Report Type: 
  Country: AT (occurrence: AT)
  Receive Date: 20121119
  Receipt Date: 20121119
  Transmission Date: 20130627
  Serious: Yes (Hospitalization, Other)
  Sender: FDA-Public Use
  Company Number: AT-ROXANE LABORATORIES, INC.-2012-RO-02380RO

PATIENT
  Age: 66 Year
  Sex: Male

DRUGS (15)
  1. AZATHIOPRINE [Suspect]
     Indication: MYASTHENIA GRAVIS
     Dates: start: 200605, end: 200607
  2. AZATHIOPRINE [Suspect]
     Dosage: 150 mg
     Dates: start: 200609
  3. CLARITHROMYCIN [Suspect]
     Indication: DRUG THERAPY
  4. FLUCONAZOLE [Suspect]
     Indication: DRUG THERAPY
  5. OXAZEPAM [Suspect]
     Indication: DEPRESSION
     Dates: start: 200605, end: 200606
  6. CORTICOSTEROIDS [Suspect]
     Indication: MYASTHENIA GRAVIS
     Dates: start: 200606
  7. NEOSTIGMINE [Suspect]
     Route: 042
  8. LEVOTHYROXINE [Suspect]
     Indication: HYPOTHYROIDISM
     Route: 048
  9. LEVOTHYROXINE [Suspect]
     Dosage: 0.16 mg
     Route: 048
  10. CEFUROXIME [Suspect]
     Indication: DRUG THERAPY
  11. CEFTAZIDIME [Suspect]
     Indication: DRUG THERAPY
  12. PYRIDOSTIGMINE [Suspect]
     Dosage: 480 mg
  13. PREDNISOLONE [Suspect]
     Dosage: 12.5 mg
  14. UNSPECIFIED INGREDIENT [Suspect]
  15. BISOPROLOL [Suspect]
     Dosage: 5 mg

REACTIONS (15)
  - Myasthenia gravis crisis [Unknown]
  - Spondylitis [Unknown]
  - Enterococcal infection [Unknown]
  - Endocarditis enterococcal [Unknown]
  - Pneumonia pseudomonas aeruginosa [Unknown]
  - Renal failure [Unknown]
  - Hypothyroidism [Unknown]
  - Tricuspid valve incompetence [Recovered/Resolved]
  - Back pain [None]
  - Depression [None]
  - Continuous haemodiafiltration [None]
  - Haemoglobin decreased [None]
  - Lymphocyte percentage decreased [None]
  - Cardiac valve vegetation [None]
  - Intervertebral discitis [None]
